FAERS Safety Report 20683812 (Version 1)
Quarter: 2022Q2

REPORT INFORMATION
  Report Type: Spontaneous
  Country: US (occurrence: US)
  Receive Date: 20220407
  Receipt Date: 20220407
  Transmission Date: 20220720
  Serious: Yes (Hospitalization)
  Sender: FDA-Public Use
  Company Number: US-MYLANLABS-2022M1025305

PATIENT
  Age: 63 Year
  Sex: Male

DRUGS (4)
  1. METOLAZONE [Suspect]
     Active Substance: METOLAZONE
     Indication: Cardiac failure
     Dosage: 5MG IN THE MORNING AND 2.5MG IN THE EVENING
     Route: 065
  2. METOLAZONE [Suspect]
     Active Substance: METOLAZONE
     Indication: Cardiac failure chronic
  3. BUMETANIDE [Suspect]
     Active Substance: BUMETANIDE
     Indication: Cardiac failure
     Dosage: 4 MILLIGRAM, BID
     Route: 048
  4. BUMETANIDE [Suspect]
     Active Substance: BUMETANIDE
     Indication: Cardiac failure chronic
     Dosage: UNK, ADDITIONAL BUMETANIDE AS NEEDED DURING HIS HOSPITAL PRESENTATIONS
     Route: 065

REACTIONS (1)
  - Treatment failure [Unknown]
